FAERS Safety Report 5501564-7 (Version None)
Quarter: 2007Q4

REPORT INFORMATION
  Report Type: 
  Country: None (occurrence: None)
  Receive Date: 20071030
  Receipt Date: 20071019
  Transmission Date: 20080405
  Serious: Yes (Hospitalization)
  Sender: FDA-Public Use
  Company Number: NO-BRISTOL-MYERS SQUIBB COMPANY-13955711

PATIENT
  Age: 81 Year
  Sex: Male

DRUGS (7)
  1. PRINIVIL [Suspect]
     Route: 048
     Dates: start: 20060725, end: 20070901
  2. METFORMIN HCL [Interacting]
     Dosage: RESTARTED AT END OF HOSPITAL STAY ON 02-OCT-2007
     Route: 048
     Dates: start: 20061012, end: 20070901
  3. ALBYL-E [Concomitant]
  4. ATENOLOL [Concomitant]
  5. DIURAL [Concomitant]
  6. INSULIN ISOPHANE HUMAN [Concomitant]
  7. SIMVASTATIN [Concomitant]

REACTIONS (3)
  - DRUG INTERACTION [None]
  - METABOLIC ACIDOSIS [None]
  - RENAL FAILURE [None]
